FAERS Safety Report 15288717 (Version 1)
Quarter: 2018Q3

REPORT INFORMATION
  Report Type: Spontaneous
  Country: HU (occurrence: HU)
  Receive Date: 20180817
  Receipt Date: 20180817
  Transmission Date: 20181010
  Serious: Yes (Other)
  Sender: FDA-Public Use
  Company Number: HU-GLAXOSMITHKLINE-HU2018148945

PATIENT
  Age: 22 Year

DRUGS (1)
  1. DICLOFENAC [Suspect]
     Active Substance: DICLOFENAC
     Indication: PRODUCT USED FOR UNKNOWN INDICATION
     Dosage: 50 MG, TID
     Route: 065

REACTIONS (5)
  - Periostitis [Unknown]
  - Swelling face [Unknown]
  - Pain [Unknown]
  - Pyrexia [Unknown]
  - Trismus [Unknown]
